FAERS Safety Report 4673250-7 (Version None)
Quarter: 2005Q2

REPORT INFORMATION
  Report Type: 
  Country: None (occurrence: None)
  Receive Date: 20050525
  Receipt Date: 20050518
  Transmission Date: 20051028
  Serious: Yes (Hospitalization, Other)
  Sender: FDA-Public Use
  Company Number: 200514471GDDC

PATIENT
  Age: 74 Year
  Sex: Female

DRUGS (12)
  1. RAMIPRIL [Suspect]
     Indication: CARDIAC FAILURE CONGESTIVE
     Route: 048
  2. FRUSEMIDE [Suspect]
     Indication: CARDIAC FAILURE CONGESTIVE
     Route: 048
     Dates: start: 20040329
  3. SPIRONOLACTONE [Suspect]
     Indication: CARDIAC FAILURE CONGESTIVE
     Route: 048
     Dates: start: 20040329
  4. SLOW-K [Concomitant]
     Indication: CARDIAC FAILURE CONGESTIVE
     Route: 048
  5. SIMVASTATIN [Concomitant]
     Route: 048
  6. AMLODIPINE [Concomitant]
     Route: 048
  7. RANITIDINE [Concomitant]
  8. COLCHICINE [Concomitant]
     Indication: GOUT
     Route: 048
  9. NITROGLYCERIN [Concomitant]
     Indication: CARDIAC FAILURE CONGESTIVE
     Route: 061
  10. SERETIDE [Concomitant]
     Dosage: DOSE: 500/50
  11. WARFARIN SODIUM [Concomitant]
     Route: 048
  12. VENTOLIN [Concomitant]
     Route: 055

REACTIONS (1)
  - RENAL FAILURE ACUTE [None]
